FAERS Safety Report 11189735 (Version 1)
Quarter: 2015Q2

REPORT INFORMATION
  Report Type: Spontaneous
  Country: US (occurrence: None)
  Receive Date: 20150612
  Receipt Date: 20150612
  Transmission Date: 20150821
  Serious: No
  Sender: FDA-Public Use
  Company Number: None

PATIENT
  Age: 43 Year
  Sex: Female
  Weight: 61.24 kg

DRUGS (4)
  1. NICOTINE. [Suspect]
     Active Substance: NICOTINE
     Indication: SMOKING CESSATION THERAPY
     Dosage: ONCE DAILY APPLIED AS MEDICATED PATCH TO SKIN
     Route: 062
     Dates: start: 20150525, end: 20150528
  2. BENZODIAZEPINE [Concomitant]
     Active Substance: BENZODIAZEPINE
  3. CYMBALTA [Concomitant]
     Active Substance: DULOXETINE HYDROCHLORIDE
  4. DAILY MULTI VITAMIN [Concomitant]

REACTIONS (4)
  - Application site erythema [None]
  - Application site pruritus [None]
  - Application site rash [None]
  - Application site swelling [None]

NARRATIVE: CASE EVENT DATE: 20150528
